FAERS Safety Report 7924276-9 (Version None)
Quarter: 2011Q4

REPORT INFORMATION
  Report Type: 
  Country: None (occurrence: None)
  Receive Date: 20111117
  Receipt Date: 20110321
  Transmission Date: 20120403
  Serious: No
  Sender: FDA-Public Use
  Company Number: US-AMGEN-USASP2011015472

PATIENT
  Age: 49 Year
  Sex: Female
  Weight: 80.726 kg

DRUGS (7)
  1. METFORMIN HCL [Concomitant]
     Dosage: 500 MG, UNK
  2. FOLIC ACID [Concomitant]
     Dosage: 1 MG, UNK
  3. ENBREL [Suspect]
     Indication: PRODUCT USED FOR UNKNOWN INDICATION
     Dosage: 50 MG, QWK
  4. GLIPIZIDE [Concomitant]
     Dosage: 5 MG, UNK
  5. LISINOPRIL [Concomitant]
     Dosage: 2.5 MG, UNK
  6. LEVEMIR [Concomitant]
  7. METHOTREXATE [Concomitant]
     Dosage: 2.5 MG, UNK

REACTIONS (2)
  - RASH [None]
  - INJECTION SITE PAIN [None]
